FAERS Safety Report 19239617 (Version 3)
Quarter: 2021Q3

REPORT INFORMATION
  Report Type: Spontaneous
  Country: US (occurrence: US)
  Receive Date: 20210510
  Receipt Date: 20210927
  Transmission Date: 20211014
  Serious: Yes (Death, Other)
  Sender: FDA-Public Use
  Company Number: US-TEVA-2021-US-1909747

PATIENT
  Age: 56 Year
  Sex: Male

DRUGS (14)
  1. ATENOLOL. [Concomitant]
     Active Substance: ATENOLOL
  2. ZOLPIDEM [Concomitant]
     Active Substance: ZOLPIDEM TARTRATE
  3. NAPROXEN SODIUM. [Concomitant]
     Active Substance: NAPROXEN SODIUM
  4. VASARTAN/HYDROCHLORTHIAZDE NOVARTIS [Suspect]
     Active Substance: HYDROCHLOROTHIAZIDE\VALSARTAN
     Dosage: 320MG/25MG
     Route: 048
     Dates: start: 201501, end: 201808
  5. VASARTAN/HYDROCHLORTHIAZDE NOVARTIS [Suspect]
     Active Substance: HYDROCHLOROTHIAZIDE\VALSARTAN
     Indication: HYPERTENSION
     Dosage: 2 DOSAGE FORMS DAILY; 160MG/12.5MG
     Route: 048
     Dates: start: 201808, end: 201812
  6. CIPROFLOXACIN. [Concomitant]
     Active Substance: CIPROFLOXACIN
  7. GABAPENTIN. [Concomitant]
     Active Substance: GABAPENTIN
     Dosage: 6 DOSAGE FORMS DAILY;
  8. BABY ASPIRIN [Concomitant]
     Active Substance: ASPIRIN
     Dosage: UNKNOWN DOSAGE; PRN
     Dates: start: 2002, end: 20190524
  9. MULTIVITAMINS [Concomitant]
     Active Substance: VITAMINS
     Dosage: UNKNOWN DOSAGE; PRN
     Dates: end: 20190524
  10. VALSARTAN/HYDROCHLORTHIAZIDE TEVA [Suspect]
     Active Substance: HYDROCHLOROTHIAZIDE\VALSARTAN
     Indication: HYPERTENSION
     Dosage: 1 DOSAGE FORMS DAILY; 320MG/25MG
     Route: 048
     Dates: start: 20141031
  11. LOVENOX [Concomitant]
     Active Substance: ENOXAPARIN SODIUM
     Indication: DEEP VEIN THROMBOSIS
     Dates: end: 201812
  12. IRON [Concomitant]
     Active Substance: IRON
     Indication: BLOOD IRON DECREASED
     Dosage: 2?3 YEARS
     Route: 048
  13. TYLENOL [Concomitant]
     Active Substance: ACETAMINOPHEN
     Dosage: UNKNOWN DOSAGE; PRN
     Dates: start: 2003, end: 20190524
  14. OSTEO BI?FLEX [Concomitant]
     Active Substance: CHONDROITIN SULFATE A\GLUCOSAMINE
     Dosage: UNKNOWN DOSAGE; PRN
     Dates: start: 2004, end: 20190524

REACTIONS (5)
  - Hepatic cancer metastatic [Not Recovered/Not Resolved]
  - Colorectal adenocarcinoma [Not Recovered/Not Resolved]
  - Prostate cancer [Recovered/Resolved]
  - Peritoneal carcinoma metastatic [Unknown]
  - Death [Fatal]
